FAERS Safety Report 8896873 (Version 1)
Quarter: 2012Q4

REPORT INFORMATION
  Report Type: Spontaneous
  Country: NO (occurrence: None)
  Receive Date: 20121101
  Receipt Date: 20121101
  Transmission Date: 20130627
  Serious: Yes (Life-Threatening, Hospitalization)
  Sender: FDA-Public Use
  Company Number: VAL_00945_2012

PATIENT

DRUGS (3)
  1. METOPROLOL [Suspect]
     Indication: CARDIAC DISORDER
     Dosage: (DF)
  2. METOPROLOL [Suspect]
     Indication: CARDIAC DISORDER
     Dosage: (DF)
  3. GABAPENTIN [Suspect]
     Indication: CHEST PAIN
     Dosage: (DF)

REACTIONS (10)
  - Myasthenia gravis [None]
  - Chronic obstructive pulmonary disease [None]
  - Thymoma [None]
  - Procedural haemorrhage [None]
  - Pneumothorax [None]
  - Post procedural complication [None]
  - Procedural pain [None]
  - General physical health deterioration [None]
  - Myocardial infarction [None]
  - Pneumonia [None]
